FAERS Safety Report 24910767 (Version 2)
Quarter: 2025Q1

REPORT INFORMATION
  Report Type: Report from Study
  Country: US (occurrence: US)
  Receive Date: 20250131
  Receipt Date: 20250210
  Transmission Date: 20250409
  Serious: Yes (Other)
  Sender: AMNEAL
  Company Number: US-AMNEAL PHARMACEUTICALS-2025-AMRX-00304

PATIENT
  Sex: Male
  Weight: 86.2 kg

DRUGS (24)
  1. OPICAPONE [Suspect]
     Active Substance: OPICAPONE
     Indication: Parkinson^s disease
     Dosage: 50 MILLIGRAM, QD (MORNING)
     Route: 048
     Dates: start: 20240701, end: 20240722
  2. OPICAPONE [Suspect]
     Active Substance: OPICAPONE
     Dosage: 50 MILLIGRAM, QD (MORNING)
     Route: 048
     Dates: start: 20240924, end: 20241001
  3. OPICAPONE [Suspect]
     Active Substance: OPICAPONE
     Route: 048
     Dates: start: 20241001
  4. BELBUCA [Concomitant]
     Active Substance: BUPRENORPHINE HYDROCHLORIDE
     Indication: Product used for unknown indication
     Route: 002
     Dates: start: 20240626, end: 20240729
  5. BELBUCA [Concomitant]
     Active Substance: BUPRENORPHINE HYDROCHLORIDE
     Route: 002
     Dates: start: 20241001
  6. SELEGILINE [Concomitant]
     Active Substance: SELEGILINE
     Indication: Product used for unknown indication
     Route: 048
     Dates: end: 20240701
  7. LIPITOR [Concomitant]
     Active Substance: ATORVASTATIN CALCIUM
     Indication: Hyperlipidaemia
     Dosage: 1 TABLETS, QD
     Route: 048
     Dates: start: 20240417
  8. SINEMET [Concomitant]
     Active Substance: CARBIDOPA\LEVODOPA
     Indication: Product used for unknown indication
     Route: 048
     Dates: start: 20240528, end: 20241001
  9. SINEMET [Concomitant]
     Active Substance: CARBIDOPA\LEVODOPA
     Route: 048
     Dates: start: 20241001
  10. KLONOPIN [Concomitant]
     Active Substance: CLONAZEPAM
     Indication: Product used for unknown indication
     Route: 048
     Dates: start: 20230901
  11. COLACE [Concomitant]
     Active Substance: DOCUSATE SODIUM
     Indication: Product used for unknown indication
     Route: 048
  12. LEXAPRO [Concomitant]
     Active Substance: ESCITALOPRAM OXALATE
     Indication: Anxiety
     Dosage: 1 TABLETS, QD
     Route: 048
     Dates: start: 20240417
  13. PREVACID [Concomitant]
     Active Substance: LANSOPRAZOLE
     Indication: Gastrooesophageal reflux disease
     Dosage: 1 CAPSULES, QD
     Route: 048
     Dates: start: 20240417
  14. INBRIJA [Concomitant]
     Active Substance: LEVODOPA
     Indication: Product used for unknown indication
     Route: 048
     Dates: start: 20240520, end: 20240818
  15. THERAPEUTIC M [Concomitant]
     Indication: Product used for unknown indication
     Dosage: 1 TABLETS, QD
     Route: 048
  16. DESYREL [Concomitant]
     Active Substance: TRAZODONE HYDROCHLORIDE
     Indication: Sleep disorder
     Route: 048
     Dates: start: 20240103
  17. MOBIC [Concomitant]
     Active Substance: MELOXICAM
     Indication: Product used for unknown indication
     Dosage: 1 TABLETS, QD
     Route: 048
     Dates: start: 20240522, end: 20240924
  18. MOBIC [Concomitant]
     Active Substance: MELOXICAM
     Route: 048
     Dates: start: 20240522, end: 20240924
  19. KETAMINE;LIDOCAINE [Concomitant]
     Indication: Pain
     Route: 045
  20. OCUFLOX [Concomitant]
     Active Substance: OFLOXACIN
     Indication: Product used for unknown indication
     Route: 065
     Dates: start: 20240402, end: 20240924
  21. COZAAR [Concomitant]
     Active Substance: LOSARTAN POTASSIUM
     Indication: Product used for unknown indication
     Route: 048
     Dates: start: 20240229, end: 20240830
  22. COZAAR [Concomitant]
     Active Substance: LOSARTAN POTASSIUM
     Route: 048
     Dates: start: 20240830
  23. LEVODOPA [Concomitant]
     Active Substance: LEVODOPA
     Indication: Product used for unknown indication
  24. NEURONTIN [Concomitant]
     Active Substance: GABAPENTIN
     Indication: Product used for unknown indication
     Dosage: 1 CAPSULES, 3X/DAY
     Route: 048
     Dates: start: 20241001, end: 20241031

REACTIONS (10)
  - Polyneuropathy [Unknown]
  - Dysdiadochokinesis [Unknown]
  - Tremor [Unknown]
  - Asthenia [Unknown]
  - Ear discomfort [Unknown]
  - Aerophobia [Unknown]
  - Reduced facial expression [Unknown]
  - Therapeutic response shortened [Unknown]
  - Constipation [Unknown]
  - Off label use [Unknown]
